FAERS Safety Report 9111848 (Version 1)
Quarter: 2013Q1

REPORT INFORMATION
  Report Type: Spontaneous
  Country: US (occurrence: US)
  Receive Date: 20130219
  Receipt Date: 20130219
  Transmission Date: 20140127
  Serious: Yes (Other)
  Sender: FDA-Public Use
  Company Number: US-BRISTOL-MYERS SQUIBB COMPANY-17002940

PATIENT
  Age: 55 Year
  Sex: Female
  Weight: 87.07 kg

DRUGS (15)
  1. ORENCIA [Suspect]
     Indication: RHEUMATOID ARTHRITIS
     Dosage: IV ORENCIA MAR08?SQ ORENCIA-NOV11-UNK DT?IV ORENCIA IN FEB12
     Route: 058
     Dates: start: 20120925
  2. WELLBUTRIN [Concomitant]
  3. MEDROL [Concomitant]
  4. METHOTREXATE [Concomitant]
  5. FLOVENT [Concomitant]
     Route: 055
  6. LUNESTA [Concomitant]
     Dosage: FREQUENCY-QHS
  7. PROTONIX [Concomitant]
  8. LODINE XL [Concomitant]
  9. PROVENTIL INHALER [Concomitant]
  10. CRESTOR [Concomitant]
  11. SYNTHROID [Concomitant]
  12. LEUCOVORIN [Concomitant]
  13. VICODIN ES [Concomitant]
     Dosage: 1DF=7.5/750,Q6H
  14. FLECTOR [Concomitant]
     Route: 062
  15. FLEXERIL [Concomitant]
     Dosage: FREQUENCY-HS

REACTIONS (3)
  - Dyspnoea [Recovered/Resolved with Sequelae]
  - Tachycardia [Recovered/Resolved with Sequelae]
  - Infusion site extravasation [Recovered/Resolved with Sequelae]
